FAERS Safety Report 24235949 (Version 1)
Quarter: 2024Q3

REPORT INFORMATION
  Report Type: Spontaneous
  Country: US (occurrence: US)
  Receive Date: 20240822
  Receipt Date: 20240822
  Transmission Date: 20241016
  Serious: No
  Sender: ENDO
  Company Number: ENDB23-04071

PATIENT
  Sex: Male

DRUGS (3)
  1. TESTOPEL [Suspect]
     Active Substance: TESTOSTERONE
     Indication: Blood testosterone decreased
     Dosage: 75 MILLIGRAM, UNKNOWN (TEN PELLETS TO THE RIGHT BUTTOCK)
     Route: 051
     Dates: start: 20231020
  2. TESTOPEL [Suspect]
     Active Substance: TESTOSTERONE
     Indication: Blood testosterone decreased
     Dosage: 75 MILLIGRAM, UNKNOWN (TEN PELLETS TO THE RIGHT BUTTOCK)
     Route: 051
     Dates: start: 20231020
  3. TESTOPEL [Suspect]
     Active Substance: TESTOSTERONE
     Indication: Blood testosterone decreased
     Dosage: 75 MILLIGRAM, UNKNOWN (TEN PELLETS TO THE RIGHT BUTTOCK)
     Route: 051
     Dates: start: 20231020

REACTIONS (3)
  - Implant site rash [Unknown]
  - Rash [Unknown]
  - Off label use [Unknown]

NARRATIVE: CASE EVENT DATE: 20231020
